FAERS Safety Report 6335880-6 (Version None)
Quarter: 2009Q3

REPORT INFORMATION
  Report Type: 
  Country: None (occurrence: None)
  Receive Date: 20090828
  Receipt Date: 20090824
  Transmission Date: 20100115
  Serious: Yes (Life-Threatening)
  Sender: FDA-Public Use
  Company Number: 09GB002281

PATIENT
  Sex: Male

DRUGS (3)
  1. CETIRIZINE HYDROCHLORIDE [Suspect]
     Indication: SEASONAL ALLERGY
     Dosage: 10 MG, QD, ORAL
     Route: 048
     Dates: start: 20090529
  2. CARBAMAZEPINE [Concomitant]
  3. LAMOTRIGINE [Concomitant]

REACTIONS (2)
  - CONVULSION [None]
  - NASOPHARYNGITIS [None]
